FAERS Safety Report 6292249-0 (Version None)
Quarter: 2009Q3

REPORT INFORMATION
  Report Type: 
  Country: None (occurrence: None)
  Receive Date: 20090731
  Receipt Date: 20090728
  Transmission Date: 20100115
  Serious: Yes (Death, Other)
  Sender: FDA-Public Use
  Company Number: PHEH2009US06570

PATIENT
  Sex: Male

DRUGS (3)
  1. EXJADE [Suspect]
     Indication: IDIOPATHIC THROMBOCYTOPENIC PURPURA
     Dosage: 2000 UNK, QD
     Route: 048
  2. NORTRIPTYLINE HCL [Concomitant]
     Dosage: 25 MG, BID
     Route: 048
  3. ZANTAC [Concomitant]
     Dosage: 150 MG, QD
     Route: 048

REACTIONS (8)
  - ACUTE RESPIRATORY DISTRESS SYNDROME [None]
  - ATRIAL FIBRILLATION [None]
  - CARDIOPULMONARY FAILURE [None]
  - MULTI-ORGAN FAILURE [None]
  - PROCALCITONIN INCREASED [None]
  - RENAL FAILURE [None]
  - SEPTIC SHOCK [None]
  - TRANSAMINASES INCREASED [None]
